FAERS Safety Report 12480774 (Version 1)
Quarter: 2016Q2

REPORT INFORMATION
  Report Type: Spontaneous
  Country: GB (occurrence: GB)
  Receive Date: 20160620
  Receipt Date: 20160620
  Transmission Date: 20160815
  Serious: Yes (Other)
  Sender: FDA-Public Use
  Company Number: GB-JNJFOC-20160411733

PATIENT
  Sex: Male

DRUGS (1)
  1. GOLIMUMAB [Suspect]
     Active Substance: GOLIMUMAB
     Indication: PRODUCT USED FOR UNKNOWN INDICATION
     Route: 058

REACTIONS (13)
  - Diabetes mellitus [Unknown]
  - Depressed mood [Unknown]
  - Neutrophil count decreased [Unknown]
  - Fatigue [Unknown]
  - Drug ineffective [Unknown]
  - Dizziness [Unknown]
  - Change of bowel habit [Unknown]
  - Lethargy [Unknown]
  - Inappropriate schedule of drug administration [Unknown]
  - Neck pain [Unknown]
  - Off label use [Unknown]
  - Asthenia [Unknown]
  - Dysuria [Recovering/Resolving]

NARRATIVE: CASE EVENT DATE: 2016
